APPROVED DRUG PRODUCT: BETAMETHASONE DIPROPIONATE
Active Ingredient: BETAMETHASONE DIPROPIONATE
Strength: EQ 0.05% BASE
Dosage Form/Route: LOTION;TOPICAL
Application: A072538 | Product #001 | TE Code: AB
Applicant: PADAGIS US LLC
Approved: Jan 31, 1990 | RLD: No | RS: No | Type: RX